FAERS Safety Report 7208757-1 (Version None)
Quarter: 2011Q1

REPORT INFORMATION
  Report Type: 
  Country: None (occurrence: None)
  Receive Date: 20110104
  Receipt Date: 20101230
  Transmission Date: 20110831
  Serious: No
  Sender: FDA-Public Use
  Company Number: IT-PFIZER INC-2010180145

PATIENT
  Sex: Female

DRUGS (3)
  1. AMIODARONE HCL [Suspect]
     Indication: ATRIAL FIBRILLATION
     Dosage: UNKOWN
     Dates: start: 20101101
  2. KALETRA [Suspect]
     Indication: HIV TEST POSITIVE
  3. TRUVADA [Suspect]
     Indication: HIV TEST POSITIVE

REACTIONS (1)
  - DRUG INTERACTION [None]
